FAERS Safety Report 15981800 (Version 4)
Quarter: 2019Q2

REPORT INFORMATION
  Report Type: Report from Study
  Country: US (occurrence: US)
  Receive Date: 20190219
  Receipt Date: 20190628
  Transmission Date: 20190711
  Serious: Yes (Hospitalization)
  Sender: FDA-Public Use
  Company Number: US-ACTELION-A-NJ2018-165742

PATIENT
  Sex: Female
  Weight: 107.48 kg

DRUGS (7)
  1. COUMADIN [Concomitant]
     Active Substance: WARFARIN SODIUM
     Dosage: UNK UNK, TID
  2. ORENITRAM [Suspect]
     Active Substance: TREPROSTINIL
     Dosage: 10.25 MG, BID
     Route: 065
  3. ADCIRCA [Concomitant]
     Active Substance: TADALAFIL
  4. ORENITRAM [Suspect]
     Active Substance: TREPROSTINIL
     Dosage: 9.75 MG, TID
     Route: 065
  5. ORENITRAM [Suspect]
     Active Substance: TREPROSTINIL
     Indication: PRODUCT USED FOR UNKNOWN INDICATION
     Dosage: 1.25 MG, TID
     Route: 065
  6. OPSUMIT [Suspect]
     Active Substance: MACITENTAN
     Indication: PULMONARY ARTERIAL HYPERTENSION
     Dosage: 10 MG, QD
     Route: 048
  7. ORENITRAM [Suspect]
     Active Substance: TREPROSTINIL
     Dosage: UNK, BID
     Route: 065

REACTIONS (13)
  - Cardiac failure congestive [Recovered/Resolved]
  - Fluid overload [Recovered/Resolved]
  - Headache [Unknown]
  - Pyrexia [Unknown]
  - Flushing [Unknown]
  - Erythema [Unknown]
  - Nausea [Unknown]
  - Diarrhoea [Unknown]
  - Oedema [Recovered/Resolved]
  - Toe amputation [Recovered/Resolved]
  - Viral infection [Unknown]
  - Palpitations [Unknown]
  - Abdominal discomfort [Unknown]
